FAERS Safety Report 11376613 (Version 1)
Quarter: 2015Q3

REPORT INFORMATION
  Report Type: Spontaneous
  Country: FR (occurrence: FR)
  Receive Date: 20150813
  Receipt Date: 20150813
  Transmission Date: 20151125
  Serious: Yes (Hospitalization)
  Sender: FDA-Public Use
  Company Number: FR-ASTRAZENECA-2015SE77619

PATIENT
  Age: 22823 Day
  Sex: Female

DRUGS (13)
  1. XEROQUEL [Suspect]
     Active Substance: QUETIAPINE FUMARATE
     Indication: BIPOLAR DISORDER
     Route: 048
     Dates: start: 20150711, end: 20150711
  2. TERCIAN [Suspect]
     Active Substance: CYAMEMAZINE
     Dosage: 21 DF (525 MG ONCE)
     Route: 048
     Dates: start: 20150711, end: 20150711
  3. CANDESARTAN [Concomitant]
     Active Substance: CANDESARTAN
  4. METFORMIN [Suspect]
     Active Substance: METFORMIN HYDROCHLORIDE
     Indication: TYPE 2 DIABETES MELLITUS
     Dosage: 850 MG, THREE TIMES A DAY (NON AZ PRODUCT)
     Route: 048
  5. TERCIAN [Suspect]
     Active Substance: CYAMEMAZINE
     Route: 048
  6. JANUVIA [Concomitant]
     Active Substance: SITAGLIPTIN PHOSPHATE
  7. TERALITHE [Concomitant]
     Active Substance: LITHIUM CARBONATE
  8. DIAMICRON [Concomitant]
     Active Substance: GLICLAZIDE
  9. LEXOMIL [Concomitant]
     Active Substance: BROMAZEPAM
     Dosage: 0.25 DF IN THE MORNING, 0.5 DF AT NOON, 0.25 DF IN THE EVENING, 0.5 DF AT NIGHT AND 0.5 DF IF NEEDED
  10. XEROQUEL [Suspect]
     Active Substance: QUETIAPINE FUMARATE
     Indication: BIPOLAR DISORDER
     Route: 048
  11. ATARAX [Suspect]
     Active Substance: HYDROXYZINE\HYDROXYZINE HYDROCHLORIDE
     Dosage: 10 DF (250 MG ONCE)
     Route: 048
     Dates: start: 20150711, end: 20150711
  12. ATARAX [Suspect]
     Active Substance: HYDROXYZINE\HYDROXYZINE HYDROCHLORIDE
     Route: 048
  13. SIMVASTATIN. [Concomitant]
     Active Substance: SIMVASTATIN

REACTIONS (4)
  - Urinary retention [Recovered/Resolved]
  - Hyperglycaemia [Recovered/Resolved]
  - Hyperlactacidaemia [Recovered/Resolved]
  - Disorientation [Recovered/Resolved]

NARRATIVE: CASE EVENT DATE: 20150711
